FAERS Safety Report 8188390-8 (Version None)
Quarter: 2012Q1

REPORT INFORMATION
  Report Type: 
  Country: None (occurrence: None)
  Receive Date: 20120306
  Receipt Date: 20120223
  Transmission Date: 20120608
  Serious: Yes (Hospitalization, Other)
  Sender: FDA-Public Use
  Company Number: PHHY2011JP11350

PATIENT
  Sex: Male
  Weight: 51 kg

DRUGS (6)
  1. MUCOSTA [Concomitant]
     Indication: PROPHYLAXIS
     Dosage: 300 MG, UNK
     Route: 048
  2. TASIGNA [Suspect]
     Indication: CHRONIC MYELOID LEUKAEMIA
     Dosage: 800 MG, DAILY
     Dates: start: 20100107, end: 20100628
  3. LANSOPRAZOLE [Concomitant]
     Indication: PROPHYLAXIS
     Dosage: 15 MG, UNK
     Route: 047
  4. FLUCONAZOLE [Concomitant]
     Indication: PROPHYLAXIS
     Dosage: 100 MG, UNK
     Route: 048
  5. KONLAX [Concomitant]
     Dosage: 990 MG, UNK
     Route: 048
  6. PANTOSIN [Concomitant]
     Indication: PROPHYLAXIS
     Dosage: 300 MG, UNK
     Route: 048

REACTIONS (4)
  - NEOPLASM MALIGNANT [None]
  - LIPASE INCREASED [None]
  - DRUG INEFFECTIVE [None]
  - NEOPLASM PROGRESSION [None]
